FAERS Safety Report 24985527 (Version 1)
Quarter: 2025Q1

REPORT INFORMATION
  Report Type: Spontaneous
  Country: US (occurrence: None)
  Receive Date: 20250217
  Receipt Date: 20250217
  Transmission Date: 20250409
  Serious: No
  Sender: FDA-CTU
  Company Number: None

PATIENT
  Age: 39 Year
  Sex: Female
  Weight: 101.25 kg

DRUGS (2)
  1. HERBALS\MITRAGYNINE [Suspect]
     Active Substance: HERBALS\MITRAGYNINE
     Indication: Weight decreased
     Route: 048
     Dates: start: 20250214, end: 20250214
  2. HERBALS\MITRAGYNINE [Suspect]
     Active Substance: HERBALS\MITRAGYNINE
     Indication: Pain

REACTIONS (5)
  - Self-medication [None]
  - Euphoric mood [None]
  - Disturbance in attention [None]
  - Vomiting [None]
  - Product use in unapproved indication [None]

NARRATIVE: CASE EVENT DATE: 20250214
